FAERS Safety Report 18565606 (Version 1)
Quarter: 2020Q4

REPORT INFORMATION
  Report Type: Spontaneous
  Country: US (occurrence: US)
  Receive Date: 20201201
  Receipt Date: 20201201
  Transmission Date: 20210114
  Serious: Yes (Other)
  Sender: FDA-Public Use
  Company Number: US-GLAXOSMITHKLINE-US2020234528

PATIENT
  Age: 70 Year
  Sex: Female

DRUGS (2)
  1. CITRUCEL [Suspect]
     Active Substance: METHYLCELLULOSE (4000 MPA.S)
     Indication: CONSTIPATION
     Dosage: UNK
  2. CITRUCEL CAPLETS [Suspect]
     Active Substance: METHYLCELLULOSES
     Indication: CONSTIPATION
     Dosage: UNK

REACTIONS (5)
  - Diarrhoea [Unknown]
  - Choking [Unknown]
  - Expired product administered [Unknown]
  - Abdominal pain [Unknown]
  - Incorrect product administration duration [Unknown]
